FAERS Safety Report 13116415 (Version 1)
Quarter: 2017Q1

REPORT INFORMATION
  Report Type: Spontaneous
  Country: US (occurrence: US)
  Receive Date: 20170116
  Receipt Date: 20170116
  Transmission Date: 20170428
  Serious: No
  Sender: FDA-Public Use
  Company Number: US-LUPIN PHARMACEUTICALS INC.-E2B_00006864

PATIENT
  Age: 64 Year
  Sex: Female
  Weight: 81.72 kg

DRUGS (4)
  1. LISINOPRIL. [Concomitant]
     Active Substance: LISINOPRIL
     Indication: PRODUCT USED FOR UNKNOWN INDICATION
     Route: 065
  2. MELOXICAM TABLETS USP 7.5MG [Suspect]
     Active Substance: MELOXICAM
     Route: 065
     Dates: start: 201603, end: 201612
  3. CITALOPRAM [Concomitant]
     Active Substance: CITALOPRAM HYDROBROMIDE
     Indication: PRODUCT USED FOR UNKNOWN INDICATION
     Route: 065
  4. MELOXICAM TABLETS USP 7.5MG [Suspect]
     Active Substance: MELOXICAM
     Indication: PAIN
     Route: 065
     Dates: start: 201603, end: 201603

REACTIONS (1)
  - Ageusia [Not Recovered/Not Resolved]

NARRATIVE: CASE EVENT DATE: 20161205
